FAERS Safety Report 16508715 (Version 1)
Quarter: 2019Q3

REPORT INFORMATION
  Report Type: Spontaneous
  Country: US (occurrence: US)
  Receive Date: 20190702
  Receipt Date: 20190702
  Transmission Date: 20191004
  Serious: No
  Sender: FDA-Public Use
  Company Number: US-ROCHE-2219356

PATIENT
  Age: 49 Year
  Sex: Female
  Weight: 58.11 kg

DRUGS (5)
  1. LUPRON [Concomitant]
     Active Substance: LEUPROLIDE ACETATE
     Indication: BREAST CANCER METASTATIC
     Route: 065
  2. XELODA [Suspect]
     Active Substance: CAPECITABINE
     Indication: BREAST CANCER METASTATIC
     Dosage: 500MG PER PILL, 7 DAYS ON 7 DAYS OFF
     Route: 065
     Dates: start: 201807
  3. VALIUM [Suspect]
     Active Substance: DIAZEPAM
     Indication: VERTIGO
     Route: 065
     Dates: start: 201808
  4. PROPANOLOL [PROPRANOLOL] [Concomitant]
     Active Substance: PROPRANOLOL HYDROCHLORIDE
     Indication: HEART RATE INCREASED
     Route: 065
  5. DELZICOL [Concomitant]
     Active Substance: MESALAMINE
     Indication: CROHN^S DISEASE
     Dosage: 3 CAPSULES 2 TIMES A DAY
     Route: 065

REACTIONS (3)
  - Intentional product use issue [Unknown]
  - Vertigo [Not Recovered/Not Resolved]
  - Off label use [Unknown]

NARRATIVE: CASE EVENT DATE: 20180730
